FAERS Safety Report 14574200 (Version 1)
Quarter: 2018Q1

REPORT INFORMATION
  Report Type: Spontaneous
  Country: US (occurrence: US)
  Receive Date: 20180224
  Receipt Date: 20180224
  Transmission Date: 20180509
  Serious: Yes (Hospitalization)
  Sender: FDA-Public Use
  Company Number: None

PATIENT
  Age: 60 Year
  Sex: Male
  Weight: 78.47 kg

DRUGS (35)
  1. SODIUM BICARBONATE. [Concomitant]
     Active Substance: SODIUM BICARBONATE
  2. GOLYTELY [Concomitant]
     Active Substance: POLYETHYLENE GLYCOL 3350\POTASSIUM CHLORIDE\SODIUM BICARBONATE\SODIUM CHLORIDE\SODIUM SULFATE ANHYDROUS
  3. ATORVASTATIN [Concomitant]
     Active Substance: ATORVASTATIN
  4. DOCUSATE SODIUM. [Concomitant]
     Active Substance: DOCUSATE SODIUM
  5. LACTULOSE. [Concomitant]
     Active Substance: LACTULOSE
  6. PSYLLIUM HUSK. [Concomitant]
     Active Substance: PSYLLIUM HUSK
  7. DARBAPOETIN [Concomitant]
  8. LIDOCAINE. [Concomitant]
     Active Substance: LIDOCAINE
  9. MIRTAZAPINE. [Concomitant]
     Active Substance: MIRTAZAPINE
  10. SPIRONOLACTONE. [Concomitant]
     Active Substance: SPIRONOLACTONE
  11. ACETAMINOPHEN. [Concomitant]
     Active Substance: ACETAMINOPHEN
  12. CARVEDILOL. [Concomitant]
     Active Substance: CARVEDILOL
  13. HYDROXYZINE [Concomitant]
     Active Substance: HYDROXYZINE HYDROCHLORIDE
  14. EPCLUSA [Suspect]
     Active Substance: SOFOSBUVIR\VELPATASVIR
     Indication: HEPATITIS C
     Dosage: 400-100MG QD ORAL
     Route: 048
     Dates: start: 20170810
  15. FERROUS SULFATE. [Concomitant]
     Active Substance: FERROUS SULFATE
  16. PANTOPRAZOLE [Concomitant]
     Active Substance: PANTOPRAZOLE
  17. RANITIDINE. [Concomitant]
     Active Substance: RANITIDINE
  18. CEFTRIAXONE. [Concomitant]
     Active Substance: CEFTRIAXONE
  19. DUONEB [Concomitant]
     Active Substance: ALBUTEROL SULFATE\IPRATROPIUM BROMIDE
  20. AMLODIPINE [Concomitant]
     Active Substance: AMLODIPINE BESYLATE
  21. FLUTICASONE. [Concomitant]
     Active Substance: FLUTICASONE
  22. CLARITIN [Concomitant]
     Active Substance: LORATADINE
  23. OCTREOTIDE. [Concomitant]
     Active Substance: OCTREOTIDE
  24. PREDNISONE. [Concomitant]
     Active Substance: PREDNISONE
  25. ASPIRIN. [Concomitant]
     Active Substance: ASPIRIN
  26. POLYETHYLENE GLYCOL [Concomitant]
     Active Substance: POLYETHYLENE GLYCOLS
  27. HYDRALAZINE [Concomitant]
     Active Substance: HYDRALAZINE HYDROCHLORIDE
  28. SENNA [Concomitant]
     Active Substance: SENNA LEAF\SENNOSIDES\SENNOSIDES A AND B
  29. TRAMADOL. [Concomitant]
     Active Substance: TRAMADOL
  30. POTASSIUM [Concomitant]
     Active Substance: POTASSIUM
  31. BISACODYL. [Concomitant]
     Active Substance: BISACODYL
  32. TRAZODONE [Concomitant]
     Active Substance: TRAZODONE HYDROCHLORIDE
  33. ALBUTEROL. [Concomitant]
     Active Substance: ALBUTEROL
  34. CALCIUM CARBONATE. [Concomitant]
     Active Substance: CALCIUM CARBONATE
  35. LASIX [Concomitant]
     Active Substance: FUROSEMIDE

REACTIONS (4)
  - Melaena [None]
  - Dialysis [None]
  - Condition aggravated [None]
  - Anaemia [None]

NARRATIVE: CASE EVENT DATE: 20171230
